FAERS Safety Report 12253344 (Version 1)
Quarter: 2016Q2

REPORT INFORMATION
  Report Type: Spontaneous
  Country: JP (occurrence: JP)
  Receive Date: 20160411
  Receipt Date: 20160411
  Transmission Date: 20160815
  Serious: Yes (Other)
  Sender: FDA-Public Use
  Company Number: JP-PFIZER INC-2016197069

PATIENT
  Sex: Male

DRUGS (2)
  1. ALDACTONE A [Suspect]
     Active Substance: SPIRONOLACTONE
     Dosage: 2 DF, DAILY
     Route: 048
  2. ALDACTONE A [Suspect]
     Active Substance: SPIRONOLACTONE
     Dosage: 1 DF, DAILY
     Route: 048

REACTIONS (4)
  - Hypotension [Unknown]
  - Decreased appetite [Unknown]
  - Nausea [Unknown]
  - Dizziness [Unknown]
